FAERS Safety Report 6940335-1 (Version None)
Quarter: 2010Q3

REPORT INFORMATION
  Report Type: 
  Country: None (occurrence: None)
  Receive Date: 20100825
  Receipt Date: 20100813
  Transmission Date: 20110219
  Serious: No
  Sender: FDA-Public Use
  Company Number: US-TEVA-245701USA

PATIENT
  Sex: Female
  Weight: 74.91 kg

DRUGS (3)
  1. ALBUTEROL SULFATE AUTOHALER [Suspect]
     Indication: MULTIPLE SCLEROSIS
  2. FLUTICASONE PROPIONATE [Concomitant]
  3. ERYTHROMYCIN [Concomitant]

REACTIONS (1)
  - UPPER RESPIRATORY TRACT INFECTION [None]
